FAERS Safety Report 7583874-5 (Version None)
Quarter: 2011Q2

REPORT INFORMATION
  Report Type: 
  Country: None (occurrence: None)
  Receive Date: 20110628
  Receipt Date: 20110628
  Transmission Date: 20111010
  Serious: Yes (Hospitalization)
  Sender: FDA-Public Use
  Company Number: None

PATIENT
  Age: 38 Year
  Sex: Male
  Weight: 77.1115 kg

DRUGS (2)
  1. NICOTINE [Suspect]
     Indication: SMOKING CESSATION THERAPY
     Dates: start: 20110626, end: 20110626
  2. LITHIUM BATTERIES CR123A 3.0V TITANIUM INNOVATIONS [Suspect]

REACTIONS (2)
  - EYE INJURY [None]
  - BURNS SECOND DEGREE [None]
